FAERS Safety Report 14596953 (Version 2)
Quarter: 2018Q1

REPORT INFORMATION
  Report Type: Report from Study
  Country: US (occurrence: US)
  Receive Date: 20180305
  Receipt Date: 20180309
  Transmission Date: 20180509
  Serious: No
  Sender: FDA-Public Use
  Company Number: US-AMGEN-USASL2018028626

PATIENT
  Sex: Male

DRUGS (2)
  1. ENBREL [Suspect]
     Active Substance: ETANERCEPT
     Indication: BENIGN FAMILIAL PEMPHIGUS
  2. ENBREL [Suspect]
     Active Substance: ETANERCEPT
     Indication: SKIN MALFORMATION
     Dosage: UNK UNK, QWK
     Route: 058

REACTIONS (1)
  - Off label use [Unknown]
